FAERS Safety Report 6034849-9 (Version None)
Quarter: 2009Q1

REPORT INFORMATION
  Report Type: 
  Country: None (occurrence: None)
  Receive Date: 20090112
  Receipt Date: 20081231
  Transmission Date: 20090719
  Serious: Yes (Other)
  Sender: FDA-Public Use
  Company Number: GB-PFIZER INC-2009150609

PATIENT

DRUGS (3)
  1. VARENICLINE TARTRATE [Suspect]
     Dates: start: 20081110, end: 20081126
  2. BECOTIDE [Concomitant]
     Indication: ASTHMA
     Dosage: UNK
     Dates: start: 19800101
  3. VENTOLIN [Concomitant]
     Indication: ASTHMA
     Dosage: UNK

REACTIONS (3)
  - ALTERED STATE OF CONSCIOUSNESS [None]
  - DEPRESSION [None]
  - SLEEP DISORDER [None]
